FAERS Safety Report 8428824-4 (Version None)
Quarter: 2012Q2

REPORT INFORMATION
  Report Type: 
  Country: None (occurrence: None)
  Receive Date: 20120604
  Receipt Date: 20120521
  Transmission Date: 20120825
  Serious: Yes (Other)
  Sender: FDA-Public Use
  Company Number: 2012MA006636

PATIENT
  Sex: Male

DRUGS (2)
  1. TAMSULOSIN HCL [Suspect]
     Dosage: 400 MG
  2. FINASTERIDE [Suspect]
     Dosage: 5 MG

REACTIONS (3)
  - DRUG INTERACTION [None]
  - DEPRESSION [None]
  - INSOMNIA [None]
